FAERS Safety Report 5805586-8 (Version None)
Quarter: 2008Q3

REPORT INFORMATION
  Report Type: 
  Country: None (occurrence: None)
  Receive Date: 20080710
  Receipt Date: 20080630
  Transmission Date: 20090109
  Serious: Yes (Other)
  Sender: FDA-Public Use
  Company Number: GB-WYE-H04759408

PATIENT
  Age: 26 Day
  Sex: Male

DRUGS (2)
  1. PIPERACILLIN AND TAZOBACTAM [Suspect]
     Indication: SEPSIS
     Route: 065
  2. GENTAMICIN [Concomitant]
     Indication: SEPSIS
     Route: 065

REACTIONS (5)
  - AGRANULOCYTOSIS [None]
  - COAGULOPATHY [None]
  - EXFOLIATIVE RASH [None]
  - NEUTROPENIA [None]
  - THROMBOCYTOPENIA [None]
